FAERS Safety Report 6643878-3 (Version None)
Quarter: 2010Q1

REPORT INFORMATION
  Report Type: 
  Country: None (occurrence: None)
  Receive Date: 20100303
  Receipt Date: 20090317
  Transmission Date: 20100710
  Serious: Yes (Hospitalization)
  Sender: FDA-Public Use
  Company Number: DSA_65097_2009

PATIENT
  Sex: Male

DRUGS (5)
  1. NAPRELAN [Suspect]
     Indication: COUGH
     Dosage: 375 MG BID ORAL
     Route: 048
     Dates: start: 20090216, end: 20090220
  2. NAPRELAN [Suspect]
     Indication: NASOPHARYNGITIS
     Dosage: 375 MG BID ORAL
     Route: 048
     Dates: start: 20090216, end: 20090220
  3. TIAZAC [Concomitant]
  4. NEXIUM [Concomitant]
  5. TYLENOL-500 [Concomitant]

REACTIONS (4)
  - ABDOMINAL DISCOMFORT [None]
  - GASTRIC ULCER [None]
  - HAEMOGLOBIN ABNORMAL [None]
  - SYNCOPE [None]
